FAERS Safety Report 8201567-8 (Version None)
Quarter: 2012Q1

REPORT INFORMATION
  Report Type: 
  Country: None (occurrence: None)
  Receive Date: 20120308
  Receipt Date: 20120229
  Transmission Date: 20120608
  Serious: Yes (Hospitalization, Other)
  Sender: FDA-Public Use
  Company Number: 2012000016

PATIENT
  Age: 85 Year
  Sex: Male

DRUGS (4)
  1. NAXIUM (ESOMEPRZOLE MAGNESIUM) [Concomitant]
  2. ACEON [Suspect]
     Indication: HYPERTENSION
     Dosage: 2.5 MG, BID, ORAL ; 2.5 MG, QD, ORAL
     Route: 048
     Dates: start: 20111130, end: 20111223
  3. ACEON [Suspect]
     Indication: HYPERTENSION
     Dosage: 2.5 MG, BID, ORAL ; 2.5 MG, QD, ORAL
     Route: 048
     Dates: start: 20111230
  4. ADALAT [Concomitant]

REACTIONS (4)
  - ATRIOVENTRICULAR BLOCK [None]
  - MUSCLE SPASMS [None]
  - DYSPEPSIA [None]
  - BLOOD PRESSURE INADEQUATELY CONTROLLED [None]
